FAERS Safety Report 6266818-8 (Version None)
Quarter: 2009Q3

REPORT INFORMATION
  Report Type: 
  Country: None (occurrence: None)
  Receive Date: 20090714
  Receipt Date: 20090708
  Transmission Date: 20100115
  Serious: Yes (Other)
  Sender: FDA-Public Use
  Company Number: GB-JNJFOC-20090601726

PATIENT
  Age: 42 Year
  Sex: Female
  Weight: 76 kg

DRUGS (1)
  1. HALDOL [Suspect]
     Indication: AFFECT LABILITY
     Route: 065

REACTIONS (2)
  - PHOTOSENSITIVITY REACTION [None]
  - PIGMENTATION DISORDER [None]
